FAERS Safety Report 17930574 (Version 1)
Quarter: 2020Q2

REPORT INFORMATION
  Report Type: Spontaneous
  Country: ZA (occurrence: ZA)
  Receive Date: 20200623
  Receipt Date: 20200623
  Transmission Date: 20200714
  Serious: Yes (Death, Other)
  Sender: FDA-Public Use
  Company Number: ZA-GLAXOSMITHKLINE-ZA2020106008

PATIENT
  Age: 25 Year
  Sex: Female

DRUGS (1)
  1. GRANDPA [Suspect]
     Active Substance: ACETAMINOPHEN\ASPIRIN\CAFFEINE
     Indication: HEADACHE
     Dosage: UNK

REACTIONS (5)
  - Gastric cancer [Fatal]
  - Gastric ulcer [Unknown]
  - Stomach mass [Unknown]
  - Condition aggravated [Unknown]
  - Drug dependence [Unknown]
